FAERS Safety Report 5595614-X (Version None)
Quarter: 2008Q1

REPORT INFORMATION
  Report Type: 
  Country: None (occurrence: None)
  Receive Date: 20080116
  Receipt Date: 20080116
  Transmission Date: 20080703
  Serious: Yes (Hospitalization)
  Sender: FDA-Public Use
  Company Number: None

PATIENT
  Age: 28 Year
  Sex: Female
  Weight: 68 kg

DRUGS (1)
  1. PREDNISONE TAB [Suspect]
     Indication: COLITIS ULCERATIVE
     Dosage: 180MG  DAILY  PO
     Route: 048
     Dates: start: 20061114, end: 20061118

REACTIONS (4)
  - EXTRAPYRAMIDAL DISORDER [None]
  - MONOPLEGIA [None]
  - MYOPATHY [None]
  - PAIN IN EXTREMITY [None]
